FAERS Safety Report 6654175-4 (Version None)
Quarter: 2010Q1

REPORT INFORMATION
  Report Type: 
  Country: None (occurrence: None)
  Receive Date: 20100326
  Receipt Date: 20100301
  Transmission Date: 20100710
  Serious: No
  Sender: FDA-Public Use
  Company Number: US-JNJFOC-20100111426

PATIENT
  Sex: Female
  Weight: 58.97 kg

DRUGS (6)
  1. INVEGA SUSTENNA [Suspect]
     Indication: TREATMENT NONCOMPLIANCE
     Route: 030
  2. INVEGA SUSTENNA [Suspect]
     Route: 030
  3. INVEGA SUSTENNA [Suspect]
     Route: 030
  4. INVEGA SUSTENNA [Suspect]
     Indication: PSYCHOTIC DISORDER
     Route: 030
  5. INVEGA SUSTENNA [Suspect]
     Route: 030
  6. INVEGA SUSTENNA [Suspect]
     Route: 030

REACTIONS (4)
  - FLAT AFFECT [None]
  - INCREASED APPETITE [None]
  - LETHARGY [None]
  - MUSCULOSKELETAL STIFFNESS [None]
